FAERS Safety Report 8340202-5 (Version None)
Quarter: 2012Q2

REPORT INFORMATION
  Report Type: 
  Country: None (occurrence: None)
  Receive Date: 20120507
  Receipt Date: 20120426
  Transmission Date: 20120825
  Serious: Yes (Other)
  Sender: FDA-Public Use
  Company Number: US-BRISTOL-MYERS SQUIBB COMPANY-16552069

PATIENT
  Age: 55 Year
  Sex: Female

DRUGS (9)
  1. SERTRALINE HYDROCHLORIDE [Concomitant]
  2. WARFARIN SODIUM [Suspect]
     Indication: FACTOR V LEIDEN MUTATION
     Dosage: INTERRUPTED FOR 2 DOSES,RESTARTED WITH 2.5MG,WITHIN 2 WEEKS BACK UP TO 10MG DAILY
  3. PRAMIPEXOLE DIHYDROCHLORIDE [Concomitant]
  4. VITAMIN K TAB [Concomitant]
     Dosage: LOW DOSE
  5. TRAZODONE HCL [Concomitant]
  6. LEVOTHYROXINE SODIUM [Concomitant]
  7. LISINOPRIL [Concomitant]
  8. MONTELUKAST [Concomitant]
  9. AMITRIPTYLINE HCL [Concomitant]

REACTIONS (2)
  - INTERNATIONAL NORMALISED RATIO INCREASED [None]
  - MIGRAINE [None]
